FAERS Safety Report 4692617-4 (Version None)
Quarter: 2005Q2

REPORT INFORMATION
  Report Type: 
  Country: None (occurrence: None)
  Receive Date: 20050617
  Receipt Date: 20050530
  Transmission Date: 20051028
  Serious: Yes (Hospitalization)
  Sender: FDA-Public Use
  Company Number: IT-SANOFI-SYNTHELABO-A06200500145

PATIENT
  Sex: Male

DRUGS (3)
  1. ELOXATIN [Suspect]
     Indication: COLON CANCER
     Route: 041
     Dates: start: 20050510, end: 20050510
  2. FLUOROURACIL ^BAXTER^ [Suspect]
     Indication: COLON CANCER
     Route: 041
     Dates: start: 20050510, end: 20050512
  3. LEVOFOLENE [Suspect]
     Indication: COLON CANCER
     Route: 041
     Dates: start: 20050510, end: 20050510

REACTIONS (3)
  - APHASIA [None]
  - CONFUSIONAL STATE [None]
  - HEMIPARESIS [None]
